FAERS Safety Report 15397434 (Version 1)
Quarter: 2018Q3

REPORT INFORMATION
  Report Type: Spontaneous
  Country: US (occurrence: US)
  Receive Date: 20180918
  Receipt Date: 20180918
  Transmission Date: 20181010
  Serious: Yes (Other)
  Sender: FDA-Public Use
  Company Number: US-DSJP-DSU-2017-148056

PATIENT

DRUGS (2)
  1. BENICAR HCT [Suspect]
     Active Substance: HYDROCHLOROTHIAZIDE\OLMESARTAN MEDOXOMIL
     Indication: PRODUCT USED FOR UNKNOWN INDICATION
     Dosage: 20?12.5MG, UNK
  2. BENICAR [Suspect]
     Active Substance: OLMESARTAN MEDOXOMIL
     Indication: PRODUCT USED FOR UNKNOWN INDICATION
     Dosage: 20 MG, QD
     Route: 048
     Dates: start: 20070319

REACTIONS (9)
  - Oesophageal stenosis [Unknown]
  - Coeliac disease [Unknown]
  - Sprue-like enteropathy [Not Recovered/Not Resolved]
  - Dizziness [Unknown]
  - Diverticulum intestinal [Unknown]
  - Gastrooesophageal reflux disease [Not Recovered/Not Resolved]
  - Gastric ulcer [Recovered/Resolved]
  - Constipation [Not Recovered/Not Resolved]
  - Oesophageal spasm [Unknown]

NARRATIVE: CASE EVENT DATE: 20071207
